FAERS Safety Report 10221818 (Version 1)
Quarter: 2014Q2

REPORT INFORMATION
  Report Type: Report from Study
  Country: GB (occurrence: GB)
  Receive Date: 20140606
  Receipt Date: 20140606
  Transmission Date: 20141212
  Serious: Yes (Other)
  Sender: FDA-Public Use
  Company Number: GB-BIOMARINAP-GB-2013-101089

PATIENT
  Age: 10 Year
  Sex: Male
  Weight: 29 kg

DRUGS (2)
  1. NAGLAZYME [Suspect]
     Indication: MUCOPOLYSACCHARIDOSIS VI
     Dosage: 1 MG/KG, QW
     Route: 041
     Dates: start: 20060630
  2. NAGLAZYME [Suspect]
     Dosage: 0.1 MG, UNK
     Route: 041
     Dates: start: 20130208

REACTIONS (1)
  - Knee deformity [Recovered/Resolved]
